APPROVED DRUG PRODUCT: CABAZITAXEL
Active Ingredient: CABAZITAXEL
Strength: 60MG/6ML (10MG/ML)
Dosage Form/Route: SOLUTION;INTRAVENOUS
Application: N207970 | Product #001
Applicant: ACTAVIS LLC AN INDIRECT WHOLLY OWNED SUB OF TEVA PHARMACEUTICALS USA INC
Approved: Mar 14, 2024 | RLD: Yes | RS: No | Type: DISCN